FAERS Safety Report 7989122-6 (Version None)
Quarter: 2011Q4

REPORT INFORMATION
  Report Type: 
  Country: None (occurrence: None)
  Receive Date: 20111219
  Receipt Date: 20111208
  Transmission Date: 20120403
  Serious: Yes (Hospitalization, Other)
  Sender: FDA-Public Use
  Company Number: US-US-EMD SERONO, INC.-233801K06USA

PATIENT
  Sex: Female
  Weight: 64 kg

DRUGS (5)
  1. XANAX [Suspect]
     Indication: ANXIETY
     Route: 048
     Dates: start: 20050801, end: 20060501
  2. WELLBUTRIN [Suspect]
     Indication: DEPRESSION
     Route: 048
     Dates: start: 20050501, end: 20060501
  3. BUSPAR [Suspect]
     Indication: ANXIETY
     Route: 048
     Dates: start: 20050801, end: 20060501
  4. AMBIEN [Suspect]
     Indication: SLEEP DISORDER
     Route: 048
     Dates: start: 20050801, end: 20060501
  5. REBIF [Suspect]
     Indication: MULTIPLE SCLEROSIS
     Route: 058
     Dates: start: 20050613

REACTIONS (7)
  - PARALYSIS [None]
  - FALL [None]
  - WEIGHT DECREASED [None]
  - INFLUENZA LIKE ILLNESS [None]
  - GRAND MAL CONVULSION [None]
  - ERYTHEMA [None]
  - EYE DISORDER [None]
